FAERS Safety Report 15098769 (Version 1)
Quarter: 2018Q3

REPORT INFORMATION
  Report Type: Spontaneous
  Country: US (occurrence: US)
  Receive Date: 20180702
  Receipt Date: 20180702
  Transmission Date: 20181010
  Serious: Yes (Other)
  Sender: FDA-Public Use
  Company Number: US-ANIPHARMA-2018-US-010451

PATIENT
  Sex: Female

DRUGS (3)
  1. CORTICOTROPIN (NON?SPECIFIC) [Suspect]
     Active Substance: CORTICOTROPIN
  2. PREDNISONE. [Suspect]
     Active Substance: PREDNISONE
  3. VIGABATRIN. [Suspect]
     Active Substance: VIGABATRIN

REACTIONS (2)
  - Epidural lipomatosis [Unknown]
  - Nuclear magnetic resonance imaging brain abnormal [Unknown]
